FAERS Safety Report 7214328-3 (Version None)
Quarter: 2011Q1

REPORT INFORMATION
  Report Type: 
  Country: None (occurrence: None)
  Receive Date: 20110107
  Receipt Date: 20101231
  Transmission Date: 20110831
  Serious: Yes (Death)
  Sender: FDA-Public Use
  Company Number: US-PFIZER INC-2011001520

PATIENT
  Age: 78 Year
  Sex: Male

DRUGS (7)
  1. ALPRAZOLAM [Suspect]
     Route: 048
  2. CODEINE [Suspect]
     Route: 048
  3. PREDNISONE [Suspect]
  4. VENLAFAXINE HCL [Suspect]
  5. DONEPEZIL HCL [Suspect]
     Route: 048
  6. CAFFEINE [Suspect]
  7. ZOLPIDEM [Suspect]

REACTIONS (4)
  - INTENTIONAL DRUG MISUSE [None]
  - COMPLETED SUICIDE [None]
  - RESPIRATORY ARREST [None]
  - CARDIAC ARREST [None]
